FAERS Safety Report 15339611 (Version 1)
Quarter: 2018Q3

REPORT INFORMATION
  Report Type: Spontaneous
  Country: FR (occurrence: FR)
  Receive Date: 20180831
  Receipt Date: 20180831
  Transmission Date: 20181010
  Serious: Yes (Other)
  Sender: FDA-Public Use
  Company Number: FR-JNJFOC-20180839518

PATIENT
  Age: 80 Year
  Sex: Male

DRUGS (1)
  1. XARELTO [Suspect]
     Active Substance: RIVAROXABAN
     Indication: PRODUCT USE IN UNAPPROVED INDICATION
     Route: 048

REACTIONS (9)
  - Arrhythmia [Not Recovered/Not Resolved]
  - Primary pulmonary melanoma [Not Recovered/Not Resolved]
  - Electroconvulsive therapy [Unknown]
  - Dry throat [Not Recovered/Not Resolved]
  - Phlebectomy [Unknown]
  - Product use in unapproved indication [Unknown]
  - Dyspnoea [Not Recovered/Not Resolved]
  - Off label use [Unknown]
  - Myalgia [Not Recovered/Not Resolved]

NARRATIVE: CASE EVENT DATE: 201712
